FAERS Safety Report 10645867 (Version 1)
Quarter: 2014Q4

REPORT INFORMATION
  Report Type: Spontaneous
  Country: BR (occurrence: BR)
  Receive Date: 20141211
  Receipt Date: 20141211
  Transmission Date: 20150529
  Serious: Yes (Other)
  Sender: FDA-Public Use
  Company Number: BR-ABBVIE-14P-020-1318681-00

PATIENT
  Sex: Female
  Weight: 130 kg

DRUGS (8)
  1. SYNTHROID [Suspect]
     Active Substance: LEVOTHYROXINE SODIUM
     Dosage: MONDAY THROUGH FRIDAY
     Route: 048
     Dates: start: 201410
  2. VITAMIN D [Concomitant]
     Active Substance: CHOLECALCIFEROL
     Indication: SUPPLEMENTATION THERAPY
     Route: 048
     Dates: start: 2012
  3. SIGMATRIOL [Concomitant]
     Active Substance: CALCITRIOL
     Indication: CALCIUM DEFICIENCY
     Dosage: 1 CAPSULE; AFTER SURGERY
     Route: 048
     Dates: start: 201410
  4. SYNTHROID [Suspect]
     Active Substance: LEVOTHYROXINE SODIUM
     Indication: AUTOIMMUNE THYROIDITIS
     Route: 048
  5. GLYCINE MAX [Concomitant]
     Indication: HORMONE REPLACEMENT THERAPY
     Route: 048
     Dates: start: 2013
  6. CALCIUM SANDOZ FF [Concomitant]
     Active Substance: CALCIUM
     Indication: CALCIUM DEFICIENCY
     Dosage: 2 UNIT; AFTER SURGERY
     Route: 048
     Dates: start: 201410
  7. TENAG [Concomitant]
     Indication: HORMONE THERAPY
     Route: 048
  8. SYNTHROID [Suspect]
     Active Substance: LEVOTHYROXINE SODIUM
     Dosage: ON THE WEEKEND
     Route: 048
     Dates: start: 20141125

REACTIONS (2)
  - Product physical issue [Unknown]
  - Thyroid cancer [Recovered/Resolved]

NARRATIVE: CASE EVENT DATE: 2014
